FAERS Safety Report 6095080-4 (Version None)
Quarter: 2009Q1

REPORT INFORMATION
  Report Type: 
  Country: None (occurrence: None)
  Receive Date: 20090227
  Receipt Date: 20080115
  Transmission Date: 20090719
  Serious: Yes (Other)
  Sender: FDA-Public Use
  Company Number: A0703345A

PATIENT
  Age: 58 Year
  Sex: Male

DRUGS (6)
  1. LAMICTAL [Suspect]
     Indication: BIPOLAR DISORDER
     Dosage: 25MG PER DAY
     Route: 048
     Dates: start: 20070601
  2. PLAVIX [Concomitant]
  3. LEXAPRO [Concomitant]
  4. TRAZODONE HCL [Concomitant]
  5. LUVOX [Concomitant]
  6. AVANDAMET [Concomitant]

REACTIONS (5)
  - DEPRESSION [None]
  - PRURITUS [None]
  - RASH [None]
  - SCAR [None]
  - SUICIDAL IDEATION [None]
